FAERS Safety Report 24667971 (Version 1)
Quarter: 2024Q4

REPORT INFORMATION
  Report Type: Spontaneous
  Country: KR (occurrence: KR)
  Receive Date: 20241127
  Receipt Date: 20241127
  Transmission Date: 20250114
  Serious: Yes (Death)
  Sender: MALLINCKRODT
  Company Number: KR-MALLINCKRODT-MNK202407096

PATIENT
  Age: 0 Year
  Sex: Male
  Weight: 4 kg

DRUGS (2)
  1. NITRIC OXIDE [Suspect]
     Active Substance: NITRIC OXIDE
     Indication: Newborn persistent pulmonary hypertension
     Dosage: 30 PPM
     Route: 055
     Dates: start: 20241113, end: 20241114
  2. NITRIC OXIDE [Suspect]
     Active Substance: NITRIC OXIDE
     Indication: Neonatal respiratory distress syndrome

REACTIONS (5)
  - Neonatal respiratory distress syndrome [Fatal]
  - Blood pressure decreased [Fatal]
  - Pulmonary haemorrhage [Fatal]
  - Newborn persistent pulmonary hypertension [Fatal]
  - Condition aggravated [Fatal]

NARRATIVE: CASE EVENT DATE: 20241101
